FAERS Safety Report 4704493-1 (Version None)
Quarter: 2005Q2

REPORT INFORMATION
  Report Type: 
  Country: None (occurrence: None)
  Receive Date: 20050628
  Receipt Date: 20050614
  Transmission Date: 20051028
  Serious: Yes (Other)
  Sender: FDA-Public Use
  Company Number: GBS041216246

PATIENT
  Age: 24 Year
  Sex: Female

DRUGS (3)
  1. OLANZAPINE [Suspect]
     Indication: PSYCHOTIC DISORDER
     Dosage: 7.5 MG
     Dates: start: 20011123
  2. CARBAMAZEPINE [Concomitant]
  3. VANLAFAXINE [Concomitant]

REACTIONS (4)
  - CONDITION AGGRAVATED [None]
  - DRUG EXPOSURE DURING PREGNANCY [None]
  - PSYCHOTIC DISORDER [None]
  - SCHIZOPHRENIA [None]
